FAERS Safety Report 21041650 (Version 1)
Quarter: 2022Q3

REPORT INFORMATION
  Report Type: Report from Study
  Country: JP (occurrence: JP)
  Receive Date: 20220705
  Receipt Date: 20220705
  Transmission Date: 20221027
  Serious: Yes (Other)
  Sender: FDA-Public Use
  Company Number: JP-INSMED-2021-09837-JPAA

PATIENT
  Age: 50 Year
  Sex: Female
  Weight: 47.6 kg

DRUGS (7)
  1. ARIKAYCE [Suspect]
     Active Substance: AMIKACIN
     Indication: Mycobacterium avium complex infection
     Dosage: 590 MILLIGRAM, QD
     Route: 055
     Dates: start: 20211012, end: 20211201
  2. CLARITHROMYCIN [Concomitant]
     Active Substance: CLARITHROMYCIN
     Indication: Mycobacterium avium complex infection
     Dosage: 400MG(MORNING), 600MG(EVENING)
     Route: 048
     Dates: start: 20190801
  3. RIFAMPIN [Concomitant]
     Active Substance: RIFAMPIN
     Indication: Mycobacterium avium complex infection
     Dosage: 450 MILLIGRAM, QD
     Route: 048
     Dates: start: 20190317
  4. EBUTOL [Concomitant]
     Active Substance: ETHAMBUTOL HYDROCHLORIDE
     Indication: Mycobacterium avium complex infection
     Dosage: 750 MILLIGRAM, QD
     Route: 048
     Dates: start: 20090317
  5. SITAFLOXACIN [Concomitant]
     Active Substance: SITAFLOXACIN
     Indication: Mycobacterium avium complex infection
     Dosage: 100 MILLIGRAM, BID
     Route: 048
     Dates: start: 20141203
  6. MIYA-BM [Concomitant]
     Active Substance: CLOSTRIDIUM BUTYRICUM SPORES STRAIN M-55
     Indication: Diarrhoea
     Dosage: 1 GRAM, BID
     Route: 048
     Dates: start: 20211011
  7. TROCHES(COMP.) [Concomitant]
     Indication: Product used for unknown indication
     Route: 048

REACTIONS (2)
  - Pulmonary toxicity [Recovered/Resolved]
  - Dysphonia [Not Recovered/Not Resolved]

NARRATIVE: CASE EVENT DATE: 20211016
